FAERS Safety Report 23668126 (Version 1)
Quarter: 2024Q1

REPORT INFORMATION
  Report Type: Spontaneous
  Country: SE (occurrence: SE)
  Receive Date: 20240325
  Receipt Date: 20240325
  Transmission Date: 20240410
  Serious: Yes (Other)
  Sender: FDA-Public Use
  Company Number: SE-BAYER-2024A041383

PATIENT
  Age: 71 Year
  Sex: Female

DRUGS (1)
  1. EYLEA [Suspect]
     Active Substance: AFLIBERCEPT
     Indication: Neovascular age-related macular degeneration
     Dosage: UNK, ONCE,SOLUTION FOR INJECTION , 40 MG/ML
     Dates: start: 20240215, end: 20240215

REACTIONS (8)
  - Hyphaema [Unknown]
  - Blindness [Recovered/Resolved]
  - Endophthalmitis [Unknown]
  - Anterior chamber cell [Unknown]
  - Vitreal cells [Unknown]
  - Photophobia [Unknown]
  - Visual impairment [Unknown]
  - Wrong technique in product usage process [Unknown]

NARRATIVE: CASE EVENT DATE: 20240216
